FAERS Safety Report 6908845-0 (Version None)
Quarter: 2010Q3

REPORT INFORMATION
  Report Type: 
  Country: None (occurrence: None)
  Receive Date: 20100805
  Receipt Date: 20100803
  Transmission Date: 20110219
  Serious: Yes (Hospitalization)
  Sender: FDA-Public Use
  Company Number: B0666611A

PATIENT
  Sex: Female
  Weight: 50 kg

DRUGS (21)
  1. ARIXTRA [Suspect]
     Indication: THROMBOSIS PROPHYLAXIS
     Dosage: 7.5MG PER DAY
     Route: 058
     Dates: start: 20100603, end: 20100610
  2. ZYLORIC [Concomitant]
     Dosage: 200MG IN THE MORNING
     Route: 065
  3. NEBIVOLOL [Concomitant]
     Dosage: 5MG IN THE MORNING
     Route: 065
  4. DILTIAZEM HCL [Concomitant]
     Dosage: 120MG TWICE PER DAY
     Route: 065
  5. APROVEL [Concomitant]
     Dosage: 300MG IN THE MORNING
     Route: 065
  6. LASIX [Concomitant]
     Dosage: 120MG PER DAY
     Route: 065
  7. VASTEN [Concomitant]
     Dosage: 40MG AT NIGHT
     Route: 065
  8. CORDARONE [Concomitant]
     Dosage: 200MG PER DAY
     Route: 065
  9. AERIUS [Concomitant]
     Dosage: 5MG IN THE MORNING
     Route: 065
  10. FORLAX [Concomitant]
     Route: 065
  11. TOPALGIC (FRANCE) [Concomitant]
     Dosage: 100MG TWICE PER DAY
     Route: 065
  12. EFFERALGAN [Concomitant]
     Dosage: 1000MG FOUR TIMES PER DAY
     Route: 065
  13. GOMENOL [Concomitant]
     Dosage: 3PUFF PER DAY
     Route: 065
  14. OXYGEN [Concomitant]
     Route: 045
  15. DUPHALAC [Concomitant]
     Route: 065
  16. COUMADIN [Concomitant]
     Route: 065
  17. HEPARIN [Concomitant]
     Route: 065
  18. PLAVIX [Concomitant]
     Route: 065
  19. CACIT D3 [Concomitant]
     Route: 065
  20. NEBIVOLOL HCL [Concomitant]
     Route: 065
  21. NON-STEROIDAL ANTI-INFLAMMATORY DRUG [Concomitant]
     Route: 065

REACTIONS (13)
  - ANAEMIA [None]
  - DEHYDRATION [None]
  - DYSPNOEA [None]
  - GENERAL PHYSICAL HEALTH DETERIORATION [None]
  - HAEMATOMA [None]
  - HYPONATRAEMIA [None]
  - LEUKOCYTOSIS [None]
  - OVERDOSE [None]
  - PAIN [None]
  - PALLOR [None]
  - RED BLOOD CELL COUNT DECREASED [None]
  - RENAL FAILURE ACUTE [None]
  - TACHYPNOEA [None]
